FAERS Safety Report 8221276-9 (Version None)
Quarter: 2012Q1

REPORT INFORMATION
  Report Type: 
  Country: None (occurrence: None)
  Receive Date: 20120320
  Receipt Date: 20120313
  Transmission Date: 20120608
  Serious: Yes (Other)
  Sender: FDA-Public Use
  Company Number: PHHY2012JP010596

PATIENT
  Sex: Female
  Weight: 9 kg

DRUGS (3)
  1. TEGRETOL [Suspect]
     Indication: CONVULSION
     Dosage: 35 MG, BID
     Route: 048
     Dates: start: 20110503, end: 20120130
  2. TEGRETOL [Suspect]
     Dosage: 30 MG, DAILY
     Route: 048
     Dates: start: 20120217
  3. TEGRETOL [Suspect]
     Dosage: 50 MG, DAILY
     Route: 048
     Dates: start: 20120131, end: 20120216

REACTIONS (6)
  - ASPARTATE AMINOTRANSFERASE INCREASED [None]
  - BLOOD POTASSIUM INCREASED [None]
  - PLATELET COUNT INCREASED [None]
  - ALANINE AMINOTRANSFERASE INCREASED [None]
  - HYPERPHOSPHATASAEMIA [None]
  - LYMPHOCYTE COUNT INCREASED [None]
